APPROVED DRUG PRODUCT: DEXTROAMPHETAMINE SULFATE
Active Ingredient: DEXTROAMPHETAMINE SULFATE
Strength: 10MG
Dosage Form/Route: TABLET;ORAL
Application: A040367 | Product #001
Applicant: NESHER PHARMACEUTICALS USA LLC
Approved: Oct 31, 2002 | RLD: No | RS: No | Type: DISCN